FAERS Safety Report 25414203 (Version 1)
Quarter: 2025Q2

REPORT INFORMATION
  Report Type: Spontaneous
  Country: US (occurrence: US)
  Receive Date: 20250609
  Receipt Date: 20250609
  Transmission Date: 20250717
  Serious: No
  Sender: STALLERGENES
  Company Number: US-STALCOR-2025-AER-01076

PATIENT
  Sex: Female

DRUGS (1)
  1. ALLERGENIC EXTRACTS [Suspect]
     Active Substance: ALLERGENIC EXTRACTS
     Indication: Product used for unknown indication
     Route: 058

REACTIONS (2)
  - Urticaria [Unknown]
  - Throat tightness [Unknown]
